FAERS Safety Report 9467098 (Version 1)
Quarter: 2013Q3

REPORT INFORMATION
  Report Type: Spontaneous
  Country: US (occurrence: US)
  Receive Date: 20130820
  Receipt Date: 20130820
  Transmission Date: 20140515
  Serious: Yes (Hospitalization, Other)
  Sender: FDA-Public Use
  Company Number: US-RB-057383-13

PATIENT
  Age: 24 Month
  Sex: 0

DRUGS (1)
  1. BUPRENORPHINE UNSPECIFIED [Suspect]
     Indication: ACCIDENTAL EXPOSURE TO PRODUCT
     Dosage: 1/4 OF AN 8 MG
     Route: 065
     Dates: start: 201111, end: 201111

REACTIONS (8)
  - Accidental exposure to product by child [Recovered/Resolved]
  - Miosis [Unknown]
  - Vomiting [Unknown]
  - Somnolence [Unknown]
  - Convulsion [Unknown]
  - Cyanosis [Unknown]
  - Apnoea [Unknown]
  - Respiratory depression [Unknown]
